FAERS Safety Report 4822376-3 (Version None)
Quarter: 2005Q4

REPORT INFORMATION
  Report Type: 
  Country: None (occurrence: None)
  Receive Date: 20051108
  Receipt Date: 20051102
  Transmission Date: 20060501
  Serious: Yes (Other)
  Sender: FDA-Public Use
  Company Number: GB-BOEHRINGER INGELHEIM PHARMACEUTICALS, INC.-2005-UK-02222UK

PATIENT
  Age: 68 Year
  Sex: Male

DRUGS (3)
  1. MICARDIS [Suspect]
     Indication: HYPERTENSION
     Route: 048
     Dates: start: 20040510, end: 20050907
  2. TAMSULOSIN [Concomitant]
     Indication: PROSTATITIS
     Route: 048
     Dates: start: 20050726
  3. ASPIRIN [Concomitant]
     Indication: AMAUROSIS FUGAX
     Route: 048
     Dates: start: 20030520

REACTIONS (5)
  - BLOOD CREATINE PHOSPHOKINASE INCREASED [None]
  - BLOOD CREATININE ABNORMAL [None]
  - EOSINOPHILIA [None]
  - HAEMOGLOBIN DECREASED [None]
  - PAIN IN EXTREMITY [None]
